FAERS Safety Report 9159931 (Version 2)
Quarter: 2013Q1

REPORT INFORMATION
  Report Type: Spontaneous
  Country: US (occurrence: None)
  Receive Date: 20130212
  Receipt Date: 20130219
  Transmission Date: 20140127
  Serious: Yes (Hospitalization)
  Sender: FDA-Public Use
  Company Number: USA/USA/13/0027791

PATIENT
  Age: 17 Year
  Sex: Male

DRUGS (3)
  1. LEVETIRACETAM (LEVETIRACETAM) [Suspect]
     Indication: CONVULSION
     Dosage: 250 MG, 2 IN 1 D
  2. PHENYTOIN (PHENYTOIN) [Suspect]
     Indication: CONVULSION
  3. CHLORPROMAZINE (CHLORPROMAZINE) [Concomitant]

REACTIONS (4)
  - Convulsion [None]
  - Pancreatitis acute [None]
  - Abdominal pain [None]
  - Dysgeusia [None]
